FAERS Safety Report 7596552-3 (Version None)
Quarter: 2011Q3

REPORT INFORMATION
  Report Type: 
  Country: None (occurrence: None)
  Receive Date: 20110708
  Receipt Date: 20110701
  Transmission Date: 20111222
  Serious: Yes (Other)
  Sender: FDA-Public Use
  Company Number: NL-AMGEN-NLDSP2011025646

PATIENT
  Age: 74 Year
  Sex: Female

DRUGS (12)
  1. CALCICHEW [Concomitant]
     Dosage: UNK
  2. FOLIC ACID [Concomitant]
     Dosage: UNK
  3. ENBREL [Suspect]
     Indication: RHEUMATOID ARTHRITIS
     Dosage: 50 MG, WEEKLY
  4. ACTONEL [Concomitant]
     Dosage: UNK
  5. LOSEC                              /00661201/ [Concomitant]
     Dosage: UNK
  6. SELOKEEN                           /00376902/ [Concomitant]
     Dosage: UNK
  7. HYPROMELLOSE [Concomitant]
     Dosage: UNK
  8. ACETAMINOPHEN [Concomitant]
     Dosage: UNK
  9. PREDNISONE [Concomitant]
     Dosage: UNK
  10. MTX                                /00113801/ [Concomitant]
     Dosage: UNK
  11. FUROSEMIDE [Concomitant]
     Dosage: UNK
  12. CRESTOR [Concomitant]
     Dosage: UNK

REACTIONS (2)
  - DRY EYE [None]
  - RHEUMATOID ARTHRITIS [None]
